FAERS Safety Report 15960003 (Version 4)
Quarter: 2019Q1

REPORT INFORMATION
  Report Type: Report from Study
  Country: CA (occurrence: CA)
  Receive Date: 20190214
  Receipt Date: 20190321
  Transmission Date: 20190417
  Serious: Yes (Other)
  Sender: FDA-Public Use
  Company Number: CA-ROCHE-2261719

PATIENT
  Sex: Female

DRUGS (16)
  1. PANTOPRAZOLE [Concomitant]
     Active Substance: PANTOPRAZOLE
  2. GRAVOL [Concomitant]
     Active Substance: DIMENHYDRINATE
     Route: 065
  3. ACTEMRA [Suspect]
     Active Substance: TOCILIZUMAB
     Indication: RHEUMATOID ARTHRITIS
     Route: 042
     Dates: start: 20140402, end: 20190214
  4. FOLIC ACID. [Concomitant]
     Active Substance: FOLIC ACID
  5. CYCLOSPORINE. [Concomitant]
     Active Substance: CYCLOSPORINE
  6. CITALOPRAM [Concomitant]
     Active Substance: CITALOPRAM HYDROBROMIDE
  7. PREGABALIN. [Concomitant]
     Active Substance: PREGABALIN
  8. CELEBREX [Concomitant]
     Active Substance: CELECOXIB
  9. TELMISARTAN. [Concomitant]
     Active Substance: TELMISARTAN
     Dosage: STOPPED
     Route: 065
  10. CYCLOBENZAPRINE. [Concomitant]
     Active Substance: CYCLOBENZAPRINE
     Route: 065
     Dates: start: 2015
  11. REFRESH CELLUVISC [Concomitant]
     Active Substance: CARBOXYMETHYLCELLULOSE SODIUM
  12. METHOTREXATE. [Concomitant]
     Active Substance: METHOTREXATE
  13. NAPROXEN. [Concomitant]
     Active Substance: NAPROXEN
  14. PREDNISONE. [Concomitant]
     Active Substance: PREDNISONE
  15. ACETYLSALICYLIC ACID [Concomitant]
     Active Substance: ASPIRIN
  16. PANTOLOC [Concomitant]
     Active Substance: PANTOPRAZOLE SODIUM
     Route: 065
     Dates: start: 2005

REACTIONS (9)
  - Joint swelling [Not Recovered/Not Resolved]
  - Hypotension [Unknown]
  - Peripheral swelling [Not Recovered/Not Resolved]
  - Synovitis [Not Recovered/Not Resolved]
  - Muscle spasms [Unknown]
  - Drug hypersensitivity [Not Recovered/Not Resolved]
  - Dry eye [Unknown]
  - Drug effect decreased [Not Recovered/Not Resolved]
  - Pain in extremity [Not Recovered/Not Resolved]

NARRATIVE: CASE EVENT DATE: 2015
